FAERS Safety Report 6618388-X (Version None)
Quarter: 2010Q1

REPORT INFORMATION
  Report Type: 
  Country: None (occurrence: None)
  Receive Date: 20100308
  Receipt Date: 20100226
  Transmission Date: 20100710
  Serious: Yes (Disabling)
  Sender: FDA-Public Use
  Company Number: B0588861D

PATIENT
  Sex: Male
  Weight: 95.1 kg

DRUGS (6)
  1. LAPATINIB [Suspect]
     Dosage: 750MG PER DAY
     Route: 048
     Dates: start: 20090728, end: 20100115
  2. CISPLATIN [Suspect]
     Dosage: 145.6MG PER DAY
     Route: 042
     Dates: start: 20090728, end: 20091217
  3. GEMCITABINE [Suspect]
     Dosage: 2000MG PER DAY
     Route: 042
     Dates: start: 20090728, end: 20091229
  4. MAGNYL [Concomitant]
     Dosage: 150MG PER DAY
     Route: 048
     Dates: start: 20090810
  5. GLUCOSAMINE [Concomitant]
     Dosage: 400MG PER DAY
     Route: 048
     Dates: start: 20070814
  6. SEREVENT [Concomitant]
     Indication: ASTHMA
     Dosage: 50UG PER DAY
     Route: 055
     Dates: start: 20090810

REACTIONS (4)
  - CAPILLARY PERMEABILITY INCREASED [None]
  - DYSPNOEA [None]
  - LUNG INFILTRATION [None]
  - PNEUMONITIS [None]
